FAERS Safety Report 4657201-7 (Version None)
Quarter: 2005Q2

REPORT INFORMATION
  Report Type: 
  Country: None (occurrence: None)
  Receive Date: 20050408
  Receipt Date: 20050209
  Transmission Date: 20051028
  Serious: No
  Sender: FDA-Public Use
  Company Number: 230502K05USA

PATIENT
  Age: 49 Year
  Sex: Female

DRUGS (11)
  1. REBIF [Suspect]
     Indication: MULTIPLE SCLEROSIS
     Dosage: 44 MCG, 3 IN 1 WEEKS, SUBCUTANEOUS;  22 MCG, 3 IN 1 WEEKS, SUBCUTANEOUS
     Route: 058
     Dates: start: 20040903, end: 20050201
  2. REBIF [Suspect]
     Indication: MULTIPLE SCLEROSIS
     Dosage: 44 MCG, 3 IN 1 WEEKS, SUBCUTANEOUS;  22 MCG, 3 IN 1 WEEKS, SUBCUTANEOUS
     Route: 058
     Dates: start: 20050201
  3. TOPAMAX [Concomitant]
  4. CRESTOR [Concomitant]
  5. AMBIEN [Concomitant]
  6. SYNTHROID [Concomitant]
  7. IMITREX [Concomitant]
  8. FLEXERIL [Concomitant]
  9. PREDNISONE [Concomitant]
  10. PREVACID [Concomitant]
  11. MULTIVITAMIN [Concomitant]

REACTIONS (9)
  - ASTHENIA [None]
  - BACK PAIN [None]
  - FATIGUE [None]
  - INFLUENZA LIKE ILLNESS [None]
  - INTERVERTEBRAL DISC DEGENERATION [None]
  - OPTIC NEURITIS [None]
  - PAIN [None]
  - PAIN IN EXTREMITY [None]
  - SINUS CONGESTION [None]
